FAERS Safety Report 15900818 (Version 1)
Quarter: 2019Q1

REPORT INFORMATION
  Report Type: Report from Study
  Country: CZ (occurrence: CZ)
  Receive Date: 20190201
  Receipt Date: 20190201
  Transmission Date: 20190417
  Serious: Yes (Hospitalization, Other)
  Sender: FDA-Public Use
  Company Number: CZ-ACCORD-105051

PATIENT
  Age: 61 Year
  Sex: Female

DRUGS (12)
  1. CODEINE [Concomitant]
     Active Substance: CODEINE
     Route: 065
  2. KALIUM CHLORATUM [Concomitant]
     Active Substance: POTASSIUM CHLORIDE
     Route: 065
  3. FLUOROURACIL. [Suspect]
     Active Substance: FLUOROURACIL
     Indication: COLORECTAL CANCER METASTATIC
     Dosage: ALSO RECEIVED 680MG AND 1360 MG,2040 MG ON 27-NOV-2015 TO 27-NOV-2015 BY INTRAVENOUS BOUS
     Route: 041
     Dates: start: 20170302, end: 20170302
  4. IRINOTECAN [Suspect]
     Active Substance: IRINOTECAN
     Indication: COLORECTAL CANCER METASTATIC
     Dosage: ALSO TAKEN 153 MG ON 02-MAR-2017 TO 02-MAR-2017
     Route: 041
     Dates: start: 20151127, end: 20151127
  5. LEUCOVORIN. [Suspect]
     Active Substance: LEUCOVORIN
     Indication: COLORECTAL CANCER METASTATIC
     Dosage: ALSO RECEIVED 340 MG ON 02-MAR-2017 TO 02-MAR-2017
     Route: 041
     Dates: start: 20151127, end: 20151127
  6. AFLIBERCEPT [Suspect]
     Active Substance: AFLIBERCEPT
     Indication: COLORECTAL CANCER METASTATIC
     Dosage: ALSO RECEIVED ON 02-MAR-2017
     Route: 041
     Dates: start: 20151127, end: 20151127
  7. DEGAN [Concomitant]
     Active Substance: METOCLOPRAMIDE HYDROCHLORIDE
     Route: 065
  8. REASEC [Concomitant]
     Active Substance: ATROPINE SULFATE\DIPHENOXYLATE HYDROCHLORIDE
     Route: 065
  9. HELICID [Concomitant]
     Active Substance: OMEPRAZOLE
  10. MILURIT [Concomitant]
     Active Substance: ALLOPURINOL
     Route: 065
  11. AFLIBERCEPT [Suspect]
     Active Substance: AFLIBERCEPT
     Indication: COLORECTAL CANCER METASTATIC
     Route: 041
     Dates: start: 20170302, end: 20170302
  12. ACIDUM FOLINICUM [Suspect]
     Active Substance: LEUCOVORIN
     Indication: COLORECTAL CANCER METASTATIC
     Route: 041
     Dates: start: 20170302, end: 20170302

REACTIONS (4)
  - Hypokalaemia [Recovered/Resolved]
  - Abdominal pain [Recovered/Resolved]
  - Diarrhoea [Recovered/Resolved]
  - Vomiting [Recovered/Resolved]

NARRATIVE: CASE EVENT DATE: 20170327
